FAERS Safety Report 5036821-4 (Version None)
Quarter: 2006Q2

REPORT INFORMATION
  Report Type: 
  Country: None (occurrence: None)
  Receive Date: 20060628
  Receipt Date: 20060616
  Transmission Date: 20061013
  Serious: Yes (Hospitalization)
  Sender: FDA-Public Use
  Company Number: PHBS2006CH08965

PATIENT
  Age: 53 Year
  Sex: Male

DRUGS (8)
  1. VOLTAREN [Suspect]
     Route: 065
     Dates: start: 20050131, end: 20060205
  2. FORTECORTIN [Suspect]
     Dosage: 12 MG/DAY
     Route: 065
     Dates: start: 20060130, end: 20060205
  3. AGOPTON [Concomitant]
     Dosage: 15 MG/DAY
     Route: 065
  4. LOZOL [Concomitant]
     Dosage: 1 DF, QD
     Route: 065
  5. DAFALGAN [Concomitant]
     Dosage: UNK, PRN
     Route: 065
  6. SIRDALUD [Concomitant]
     Dosage: 2 MG/DAY
     Route: 065
  7. TEMESTA [Concomitant]
     Dosage: UNK, PRN
     Route: 065
  8. TRAMADOL HCL [Concomitant]
     Dosage: UNK, PRN
     Route: 065

REACTIONS (7)
  - ABDOMINAL PAIN [None]
  - BLOOD AMYLASE INCREASED [None]
  - C-REACTIVE PROTEIN INCREASED [None]
  - INTERVERTEBRAL DISC PROTRUSION [None]
  - LIPASE INCREASED [None]
  - PANCREATITIS ACUTE [None]
  - RADICULAR SYNDROME [None]
